FAERS Safety Report 22160848 (Version 1)
Quarter: 2023Q1

REPORT INFORMATION
  Report Type: Spontaneous
  Country: GR (occurrence: GR)
  Receive Date: 20230331
  Receipt Date: 20230331
  Transmission Date: 20230418
  Serious: No
  Sender: FDA-Public Use
  Company Number: GR-PFIZER INC-PV202300052664

PATIENT
  Age: 4 Year
  Sex: Female
  Weight: 13 kg

DRUGS (4)
  1. GENOTROPIN [Suspect]
     Active Substance: SOMATROPIN
     Indication: Short stature
     Dosage: 0.5MG/DAY, 1 DAY OFF
     Route: 058
     Dates: start: 20230306
  2. GENOTROPIN [Suspect]
     Active Substance: SOMATROPIN
     Dosage: 0.3 MG
     Dates: start: 20230317
  3. GENOTROPIN [Suspect]
     Active Substance: SOMATROPIN
     Dosage: 0.7 MG/ DAY, 1 DAY OFF
  4. MEDITHYROX [Concomitant]
     Dosage: 12MG + 25MG DAILY (EXCEPT SUNDAY THAT RECEIVES ONLY 25 MG)

REACTIONS (4)
  - Device use error [Unknown]
  - Drug dose omission by device [Unknown]
  - Device breakage [Unknown]
  - Device leakage [Unknown]

NARRATIVE: CASE EVENT DATE: 20230318
